FAERS Safety Report 8074234-1 (Version None)
Quarter: 2012Q1

REPORT INFORMATION
  Report Type: 
  Country: None (occurrence: None)
  Receive Date: 20120126
  Receipt Date: 20120125
  Transmission Date: 20120608
  Serious: No
  Sender: FDA-Public Use
  Company Number: US-TEVA-319151USA

PATIENT
  Sex: Female
  Weight: 49.94 kg

DRUGS (1)
  1. PROAIR HFA [Suspect]
     Dates: start: 20110701, end: 20120101

REACTIONS (4)
  - MUSCLE SPASMS [None]
  - NIGHT SWEATS [None]
  - PALPITATIONS [None]
  - BLOOD POTASSIUM DECREASED [None]
